FAERS Safety Report 19453919 (Version 7)
Quarter: 2021Q4

REPORT INFORMATION
  Report Type: Report from Study
  Country: DE (occurrence: DE)
  Receive Date: 20210623
  Receipt Date: 20211025
  Transmission Date: 20220303
  Serious: Yes (Life-Threatening)
  Sender: FDA-Public Use
  Company Number: DE-CELGENE-DEU-20210606039

PATIENT
  Age: 66 Year
  Sex: Male

DRUGS (9)
  1. CYTARABINE [Suspect]
     Active Substance: CYTARABINE
     Indication: Acute myeloid leukaemia
     Route: 041
     Dates: start: 20210527, end: 20210531
  2. POTASSIUM [Concomitant]
     Active Substance: POTASSIUM
     Indication: Product used for unknown indication
     Route: 065
     Dates: start: 20210619
  3. Novalgin [Concomitant]
     Indication: Product used for unknown indication
     Route: 065
     Dates: start: 20210614
  4. Cimetidin [Concomitant]
     Indication: Product used for unknown indication
     Route: 065
     Dates: start: 20210614
  5. DIMETHINDENE [Concomitant]
     Active Substance: DIMETHINDENE
     Indication: Product used for unknown indication
     Route: 065
     Dates: start: 20210614
  6. FUROSEMIDE [Concomitant]
     Active Substance: FUROSEMIDE
     Indication: Product used for unknown indication
     Route: 065
     Dates: start: 20210616
  7. FILGRASTIM [Concomitant]
     Active Substance: FILGRASTIM
     Indication: Colony stimulating factor therapy
     Route: 065
     Dates: start: 20210707
  8. PIPERACILLIN SODIUM\TAZOBACTAM SODIUM [Concomitant]
     Active Substance: PIPERACILLIN SODIUM\TAZOBACTAM SODIUM
     Indication: Product used for unknown indication
     Route: 065
     Dates: end: 20210817
  9. ENASIDENIB [Suspect]
     Active Substance: ENASIDENIB
     Indication: Acute myeloid leukaemia
     Route: 048
     Dates: start: 20210507, end: 20210610

REACTIONS (1)
  - Atypical pneumonia [Recovered/Resolved]

NARRATIVE: CASE EVENT DATE: 20210621
